FAERS Safety Report 7585289-2 (Version None)
Quarter: 2011Q2

REPORT INFORMATION
  Report Type: 
  Country: None (occurrence: None)
  Receive Date: 20110629
  Receipt Date: 20110629
  Transmission Date: 20111010
  Serious: No
  Sender: FDA-Public Use
  Company Number: None

PATIENT
  Age: 57 Year
  Sex: Female
  Weight: 66.2252 kg

DRUGS (1)
  1. LOVASTATIN [Suspect]
     Indication: BLOOD CHOLESTEROL INCREASED
     Dosage: 10 MG ONE TABLET IN PM PO
     Route: 048
     Dates: start: 20110213, end: 20110530

REACTIONS (7)
  - PAIN [None]
  - FATIGUE [None]
  - INFLUENZA [None]
  - INSOMNIA [None]
  - IMPAIRED WORK ABILITY [None]
  - MYALGIA [None]
  - ARTHRALGIA [None]
